FAERS Safety Report 23422547 (Version 7)
Quarter: 2024Q1

REPORT INFORMATION
  Report Type: Report from Study
  Country: ES (occurrence: ES)
  Receive Date: 20240119
  Receipt Date: 20240229
  Transmission Date: 20240410
  Serious: Yes (Other)
  Sender: FDA-Public Use
  Company Number: ES-ABBVIE-5485258

PATIENT
  Sex: Male

DRUGS (4)
  1. CARBIDOPA\LEVODOPA [Suspect]
     Active Substance: CARBIDOPA\LEVODOPA
     Indication: Parkinson^s disease
     Dosage: CONTINUES DOSE OF 5.1
     Route: 050
     Dates: start: 20221207
  2. CARBIDOPA\LEVODOPA [Suspect]
     Active Substance: CARBIDOPA\LEVODOPA
     Route: 050
  3. CARBIDOPA\LEVODOPA [Suspect]
     Active Substance: CARBIDOPA\LEVODOPA
     Route: 050
  4. CARBIDOPA\LEVODOPA [Suspect]
     Active Substance: CARBIDOPA\LEVODOPA
     Route: 050

REACTIONS (40)
  - Device dislocation [Not Recovered/Not Resolved]
  - Movement disorder [Recovered/Resolved]
  - Urinary tract infection [Recovering/Resolving]
  - Pain [Recovered/Resolved]
  - Off label use [Not Recovered/Not Resolved]
  - Mass [Not Recovered/Not Resolved]
  - Pain [Recovered/Resolved]
  - Vomiting [Recovered/Resolved]
  - Viral infection [Unknown]
  - General physical health deterioration [Unknown]
  - Therapeutic product effect incomplete [Not Recovered/Not Resolved]
  - Stoma site discharge [Recovering/Resolving]
  - Stoma site discharge [Not Recovered/Not Resolved]
  - Medical device pain [Not Recovered/Not Resolved]
  - Granuloma [Not Recovered/Not Resolved]
  - Dyskinesia [Not Recovered/Not Resolved]
  - Unevaluable event [Unknown]
  - Insomnia [Unknown]
  - Trismus [Not Recovered/Not Resolved]
  - Movement disorder [Recovered/Resolved]
  - Movement disorder [Not Recovered/Not Resolved]
  - Stoma site pain [Not Recovered/Not Resolved]
  - Unevaluable event [Unknown]
  - Device occlusion [Unknown]
  - Weight decreased [Not Recovered/Not Resolved]
  - Abdominal pain upper [Not Recovered/Not Resolved]
  - Decreased appetite [Not Recovered/Not Resolved]
  - Loss of personal independence in daily activities [Unknown]
  - Device dislocation [Not Recovered/Not Resolved]
  - Medical device removal [Recovered/Resolved]
  - Renal pain [Not Recovered/Not Resolved]
  - Freezing phenomenon [Unknown]
  - Bezoar [Recovered/Resolved]
  - On and off phenomenon [Unknown]
  - Medical device pain [Unknown]
  - Embedded device [Unknown]
  - Incorrect dose administered [Unknown]
  - Drug intolerance [Unknown]
  - Pain [Unknown]
  - Loss of personal independence in daily activities [Unknown]

NARRATIVE: CASE EVENT DATE: 20230101
